FAERS Safety Report 5316564-X (Version None)
Quarter: 2007Q2

REPORT INFORMATION
  Report Type: 
  Country: None (occurrence: None)
  Receive Date: 20070504
  Receipt Date: 20070430
  Transmission Date: 20071010
  Serious: Yes (Death, Hospitalization)
  Sender: FDA-Public Use
  Company Number: GB-AVENTIS-200713636GDDC

PATIENT
  Age: 70 Year
  Weight: 83 kg

DRUGS (5)
  1. INSULIN GLARGINE [Suspect]
     Route: 058
  2. GLICLAZIDE [Concomitant]
     Route: 048
     Dates: start: 20040914, end: 20061123
  3. GLICLAZIDE [Concomitant]
     Route: 048
     Dates: start: 20061123
  4. METFORMIN HCL [Concomitant]
     Route: 048
     Dates: start: 20050627
  5. METHOTREXATE [Concomitant]
     Route: 048
     Dates: start: 20030528

REACTIONS (3)
  - DEATH [None]
  - HYPOGLYCAEMIA [None]
  - LOSS OF CONSCIOUSNESS [None]
